FAERS Safety Report 5258668-6 (Version None)
Quarter: 2007Q1

REPORT INFORMATION
  Report Type: 
  Country: None (occurrence: None)
  Receive Date: 20070305
  Receipt Date: 20070220
  Transmission Date: 20070707
  Serious: Yes (Hospitalization, Other)
  Sender: FDA-Public Use
  Company Number: 2007SP003277

PATIENT
  Age: 63 Year
  Sex: Female

DRUGS (4)
  1. TEMODAL [Suspect]
     Indication: GLIOBLASTOMA MULTIFORME
     Dosage: 200 MG/M2; PO
     Route: 048
     Dates: start: 20070103
  2. DECADRON [Concomitant]
  3. FRAGMIN [Concomitant]
  4. DILANTIN [Concomitant]

REACTIONS (7)
  - CONVULSION [None]
  - DYSPEPSIA [None]
  - FACIAL PARESIS [None]
  - GASTROENTERITIS VIRAL [None]
  - NEUTROPENIA [None]
  - TREMOR [None]
  - VISUAL ACUITY REDUCED [None]
